FAERS Safety Report 9039566 (Version 1)
Quarter: 2013Q1

REPORT INFORMATION
  Report Type: Report from Study
  Country: US (occurrence: US)
  Receive Date: 20130129
  Receipt Date: 20130129
  Transmission Date: 20140127
  Serious: No
  Sender: FDA-Public Use
  Company Number: US-ABBOTT-12P-163-0937514-00

PATIENT
  Age: 52 Year
  Sex: Female

DRUGS (11)
  1. HUMIRA 40 MG/ 0.8 ML PRE-FILLED SYRINGE [Suspect]
     Indication: CROHN^S DISEASE
     Dosage: 1ST INJECTION
     Route: 058
     Dates: start: 20120505
  2. HUMIRA 40 MG/ 0.8 ML PRE-FILLED SYRINGE [Suspect]
     Dates: start: 20120519
  3. XYZAL [Concomitant]
     Indication: RHINITIS
     Dosage: 5MG DAILY
  4. XYZAL [Concomitant]
     Indication: ASTHMA
  5. FAMOTIDINE [Concomitant]
     Indication: GASTROOESOPHAGEAL REFLUX DISEASE
  6. LISINOPRIL HCTZ [Concomitant]
     Indication: HYPERTENSION
     Dosage: 20/25MG DAILY
  7. CYMBALTA [Concomitant]
     Indication: DEPRESSION
  8. SINGULAR [Concomitant]
     Indication: RHINITIS
     Dosage: 10MG DAILY
  9. BUDESONIDE EC [Concomitant]
     Indication: ASTHMA
     Dosage: 3MG DAILY
  10. BUDESONIDE EC [Concomitant]
     Indication: RHINITIS
  11. VERAMYST NASAL SPRAY [Concomitant]
     Indication: RHINITIS
     Dosage: 2 PUFFS EACH NOSTRIL DAILY
     Route: 055

REACTIONS (1)
  - Rash generalised [Recovering/Resolving]
